FAERS Safety Report 12875224 (Version 3)
Quarter: 2017Q1

REPORT INFORMATION
  Report Type: Report from Study
  Country: EC (occurrence: EC)
  Receive Date: 20161024
  Receipt Date: 20170320
  Transmission Date: 20170428
  Serious: Yes (Death, Hospitalization, Disabling)
  Sender: FDA-Public Use
  Company Number: EC-ROCHE-1800459

PATIENT
  Sex: Male

DRUGS (2)
  1. MABTHERA [Suspect]
     Active Substance: RITUXIMAB
     Indication: NON-HODGKIN^S LYMPHOMA
     Dosage: VIAL
     Route: 042
     Dates: start: 20150709
  2. MABTHERA [Suspect]
     Active Substance: RITUXIMAB
     Route: 042
     Dates: start: 201605

REACTIONS (12)
  - Nosocomial infection [Fatal]
  - Asthenia [Unknown]
  - Hypotension [Recovering/Resolving]
  - Haemorrhage [Unknown]
  - Disease recurrence [Not Recovered/Not Resolved]
  - Cardio-respiratory arrest [Fatal]
  - Cerebrovascular accident [Fatal]
  - Cardiac disorder [Recovering/Resolving]
  - Decreased appetite [Unknown]
  - Gait disturbance [Unknown]
  - Syncope [Unknown]
  - Abdominal mass [Recovered/Resolved]

NARRATIVE: CASE EVENT DATE: 20160114
